FAERS Safety Report 4328625-2 (Version None)
Quarter: 2004Q1

REPORT INFORMATION
  Report Type: 
  Country: None (occurrence: None)
  Receive Date: 20040322
  Receipt Date: 20040310
  Transmission Date: 20041129
  Serious: No
  Sender: FDA-Public Use
  Company Number: CART-10327

PATIENT
  Age: 42 Year
  Sex: Male

DRUGS (1)
  1. CARTICEL [Suspect]
     Indication: KNEE ARTHROPLASTY
     Dosage: 1 NA ONCE IS
     Dates: start: 20010717, end: 20010717

REACTIONS (4)
  - ARTHRALGIA [None]
  - CHONDROMALACIA [None]
  - GRAFT COMPLICATION [None]
  - JOINT LOCK [None]
